FAERS Safety Report 12642513 (Version 2)
Quarter: 2016Q3

REPORT INFORMATION
  Report Type: Report from Study
  Country: DE (occurrence: DE)
  Receive Date: 20160810
  Receipt Date: 20160915
  Transmission Date: 20161109
  Serious: Yes (Death, Life-Threatening, Hospitalization, Other)
  Sender: FDA-Public Use
  Company Number: PHHY2016DE099614

PATIENT
  Age: 77 Year
  Sex: Female
  Weight: 70 kg

DRUGS (12)
  1. ASPIRIN. [Concomitant]
     Active Substance: ASPIRIN
     Indication: PRODUCT USED FOR UNKNOWN INDICATION
     Dosage: 100 MG, BID
     Route: 065
  2. VIDAZA [Concomitant]
     Active Substance: AZACITIDINE
     Indication: PRODUCT USED FOR UNKNOWN INDICATION
     Dosage: 128 MG, QD
     Route: 058
     Dates: start: 20160716, end: 20160721
  3. DESFERAL [Suspect]
     Active Substance: DEFEROXAMINE MESYLATE
     Indication: IRON OVERLOAD
     Dosage: 28.57 MG/KG, QD
     Route: 065
     Dates: start: 20160304, end: 20160608
  4. DESFERAL [Suspect]
     Active Substance: DEFEROXAMINE MESYLATE
     Dosage: 250 ML, QD
     Route: 065
  5. ASPIRIN. [Concomitant]
     Active Substance: ASPIRIN
     Dosage: 100 OT, QD
     Route: 065
  6. ACTRAPID//INSULIN HUMAN [Concomitant]
     Indication: PRODUCT USED FOR UNKNOWN INDICATION
     Dosage: UNK, /DEPENDS ON VALUE,UNKNOWN FREQUENCY
     Route: 065
  7. EXJADE [Suspect]
     Active Substance: DEFERASIROX
     Indication: IRON OVERLOAD
     Dosage: 7.7 MG/KG, UNK
     Route: 065
     Dates: start: 20160719
  8. EXJADE [Suspect]
     Active Substance: DEFERASIROX
     Dosage: 500 MG, QD (7.7 MG/KG BODY WEIGHT))
     Route: 065
  9. EPOETIN [Concomitant]
     Active Substance: ERYTHROPOIETIN
     Indication: PRODUCT USED FOR UNKNOWN INDICATION
     Dosage: 30 IU QW
     Route: 058
     Dates: start: 201508
  10. SIMVASTATIN. [Concomitant]
     Active Substance: SIMVASTATIN
     Indication: PRODUCT USED FOR UNKNOWN INDICATION
     Dosage: 20 MG, BID
     Route: 065
  11. SIMVASTATIN. [Concomitant]
     Active Substance: SIMVASTATIN
     Dosage: 20 MG, QD
     Route: 065
  12. ISOCOM [Concomitant]
     Indication: PRODUCT USED FOR UNKNOWN INDICATION
     Dosage: 200 MG, BID (200/50 MG ONCE DAILY)
     Route: 065

REACTIONS (10)
  - General physical health deterioration [Fatal]
  - Nausea [Recovering/Resolving]
  - Dizziness [Recovered/Resolved]
  - Vomiting [Recovering/Resolving]
  - Diarrhoea [Recovered/Resolved]
  - Concomitant disease aggravated [Recovering/Resolving]
  - Haemoglobin decreased [Fatal]
  - Myelodysplastic syndrome [Recovering/Resolving]
  - Serum ferritin increased [Not Recovered/Not Resolved]
  - Haemoglobin decreased [Recovering/Resolving]

NARRATIVE: CASE EVENT DATE: 20160625
